FAERS Safety Report 21753594 (Version 1)
Quarter: 2022Q4

REPORT INFORMATION
  Report Type: Spontaneous
  Country: CA (occurrence: CA)
  Receive Date: 20221220
  Receipt Date: 20221220
  Transmission Date: 20230113
  Serious: Yes (Disabling)
  Sender: FDA-Public Use
  Company Number: CA-JNJFOC-20221237491

PATIENT
  Age: 77 Year
  Sex: Male

DRUGS (1)
  1. INVOKANA [Suspect]
     Active Substance: CANAGLIFLOZIN
     Indication: Diabetes mellitus
     Route: 048

REACTIONS (4)
  - Impaired driving ability [Recovered/Resolved]
  - Visual impairment [Recovered/Resolved]
  - Fine motor skill dysfunction [Recovered/Resolved]
  - Confusional state [Recovered/Resolved]
